FAERS Safety Report 7041732-9 (Version None)
Quarter: 2010Q4

REPORT INFORMATION
  Report Type: 
  Country: None (occurrence: None)
  Receive Date: 20101013
  Receipt Date: 20100707
  Transmission Date: 20110411
  Serious: No
  Sender: FDA-Public Use
  Company Number: US-ASTRAZENECA-2010SE16748

PATIENT
  Age: 126 Month
  Sex: Male
  Weight: 52.2 kg

DRUGS (4)
  1. SYMBICORT [Suspect]
     Indication: ASTHMA
     Dosage: 2 PUFFS BID
     Route: 055
     Dates: start: 20070101
  2. SINGULAIR [Concomitant]
     Indication: ASTHMA
  3. ALBUTEROL [Concomitant]
     Indication: ASTHMA
  4. CLARITIN [Concomitant]
     Indication: ASTHMA

REACTIONS (5)
  - BRONCHITIS [None]
  - CHEST PAIN [None]
  - HEART RATE INCREASED [None]
  - ODYNOPHAGIA [None]
  - PHARYNGITIS STREPTOCOCCAL [None]
